FAERS Safety Report 6756378-7 (Version None)
Quarter: 2010Q2

REPORT INFORMATION
  Report Type: 
  Country: None (occurrence: None)
  Receive Date: 20100524
  Receipt Date: 20100209
  Transmission Date: 20101027
  Serious: No
  Sender: FDA-Public Use
  Company Number: 006750

PATIENT
  Sex: Female
  Weight: 51.4 kg

DRUGS (5)
  1. CIMZIA [Suspect]
     Indication: CROHN'S DISEASE
     Dosage: 400 MG SUBCUTANEOUS
     Route: 058
     Dates: start: 20090604
  2. ACETAMINOPHEN [Concomitant]
  3. URSODIOL [Concomitant]
  4. FERRLECIT [Concomitant]
  5. TPN ELECTROLYTES IN PLASTIC CONTAINER [Concomitant]

REACTIONS (4)
  - DIARRHOEA HAEMORRHAGIC [None]
  - HEADACHE [None]
  - INJECTION SITE DISCOLOURATION [None]
  - INTESTINAL OBSTRUCTION [None]
